FAERS Safety Report 5027818-9 (Version None)
Quarter: 2006Q2

REPORT INFORMATION
  Report Type: 
  Country: None (occurrence: None)
  Receive Date: 20060501
  Receipt Date: 20060131
  Transmission Date: 20061013
  Serious: Yes (Other)
  Sender: FDA-Public Use
  Company Number: 200516733US

PATIENT
  Sex: Male

DRUGS (4)
  1. KETEK [Suspect]
     Indication: BRONCHITIS ACUTE
     Dosage: 800 MG QD PO
     Route: 048
     Dates: start: 20050919, end: 20050919
  2. KETEK [Suspect]
     Indication: CONDITION AGGRAVATED
     Dosage: 800 MG QD PO
     Route: 048
     Dates: start: 20050919, end: 20050919
  3. IPRATROPIUM BROMIDE [Concomitant]
  4. SALBUTAMOL SULFATE (DUONEB) [Concomitant]

REACTIONS (4)
  - ASTHMA [None]
  - DYSPNOEA [None]
  - HYPERSENSITIVITY [None]
  - WHEEZING [None]
